FAERS Safety Report 5222400-2 (Version None)
Quarter: 2007Q1

REPORT INFORMATION
  Report Type: 
  Country: None (occurrence: None)
  Receive Date: 20070129
  Receipt Date: 20060329
  Transmission Date: 20070707
  Serious: No
  Sender: FDA-Public Use
  Company Number: US-BRISTOL-MYERS SQUIBB COMPANY-13331673

PATIENT
  Age: 44 Year
  Sex: Male
  Weight: 136 kg

DRUGS (1)
  1. DESYREL [Suspect]

REACTIONS (2)
  - FATIGUE [None]
  - LAZINESS [None]
